FAERS Safety Report 13892051 (Version 1)
Quarter: 2017Q3

REPORT INFORMATION
  Report Type: Spontaneous
  Country: US (occurrence: US)
  Receive Date: 20170822
  Receipt Date: 20170822
  Transmission Date: 20171127
  Serious: No
  Sender: FDA-Public Use
  Company Number: US-ENDO PHARMACEUTICALS INC-2016-006218

PATIENT
  Age: 59 Year
  Sex: Male
  Weight: 88.44 kg

DRUGS (3)
  1. TESTOPEL [Suspect]
     Active Substance: TESTOSTERONE
     Indication: BLOOD TESTOSTERONE DECREASED
     Dosage: 10 PELLETS INSERTED INTO THE BUTTOCKS EVERY 4 TO 5 MONTHS
     Route: 065
     Dates: start: 20160418
  2. TESTOPEL [Suspect]
     Active Substance: TESTOSTERONE
     Dosage: 10 PELLETS INSERTED INTO THE BUTTOCKS EVERY 4 TO 5 MONTHS
     Route: 065
     Dates: start: 2011
  3. TESTOPEL [Suspect]
     Active Substance: TESTOSTERONE
     Dosage: 10 PELLETS INSERTED INTO THE BUTTOCKS EVERY 4 TO 5 MONTHS
     Route: 065
     Dates: start: 20160901

REACTIONS (5)
  - Loss of personal independence in daily activities [Unknown]
  - Gait disturbance [Recovered/Resolved]
  - Drug ineffective [Unknown]
  - Asthenia [Recovering/Resolving]
  - Prescribed overdose [Not Recovered/Not Resolved]

NARRATIVE: CASE EVENT DATE: 2011
